FAERS Safety Report 8790169 (Version 2)
Quarter: 2012Q4

REPORT INFORMATION
  Report Type: Report from Study
  Country: JP (occurrence: JP)
  Receive Date: 20120914
  Receipt Date: 20120924
  Transmission Date: 20130627
  Serious: Yes (Death)
  Sender: FDA-Public Use
  Company Number: JP-ASTELLAS-2012US007849

PATIENT
  Age: 21 Year
  Sex: Male

DRUGS (3)
  1. AMBISOME [Suspect]
     Indication: FEBRILE NEUTROPENIA
     Dosage: 150 mg, UID/QD
     Route: 042
     Dates: start: 20120716, end: 20120725
  2. AMBISOME [Suspect]
     Indication: FUNGAL INFECTION
     Dosage: 250 mg, UID/QD
     Route: 042
     Dates: start: 20120726, end: 20120731
  3. AMBISOME [Suspect]
     Dosage: 150 mg, UID/QD
     Route: 042
     Dates: start: 20120801, end: 20120901

REACTIONS (5)
  - Drug ineffective [Fatal]
  - Pulmonary trichosporonosis [Fatal]
  - Sepsis [Fatal]
  - Pneumonia [Fatal]
  - Pericarditis [Fatal]
